FAERS Safety Report 5703718-3 (Version None)
Quarter: 2008Q2

REPORT INFORMATION
  Report Type: 
  Country: None (occurrence: None)
  Receive Date: 20080413
  Receipt Date: 20080407
  Transmission Date: 20081010
  Serious: Yes (Other)
  Sender: FDA-Public Use
  Company Number: PHEH2006US05812

PATIENT
  Age: 67 Year
  Sex: Female
  Weight: 75.736 kg

DRUGS (10)
  1. AREDIA [Suspect]
     Indication: METASTASES TO BONE
     Dosage: 90 MG MONTHLY
     Route: 042
     Dates: start: 20000601, end: 20050101
  2. ZOMETA [Suspect]
     Indication: METASTASES TO BONE
     Dosage: 4 MG MONTHLY
     Route: 042
     Dates: start: 20020604, end: 20020702
  3. ZOMETA [Suspect]
     Dosage: 4 MG MONTHLY
     Route: 042
     Dates: start: 20020901, end: 20050101
  4. FOSAMAX [Suspect]
  5. HERCEPTIN [Concomitant]
     Indication: BREAST CANCER
     Dosage: UNK, QW
     Dates: start: 20000601
  6. NAVELBINE [Concomitant]
     Indication: BREAST CANCER
     Dosage: UNK, QW
     Dates: start: 20000601
  7. TAXOL [Concomitant]
     Indication: BREAST CANCER
     Dosage: UNK, QW
     Dates: start: 20040101, end: 20050101
  8. LIPITOR [Concomitant]
     Route: 048
  9. ARANESP [Concomitant]
     Dates: start: 20020101
  10. DOCETAXEL [Concomitant]

REACTIONS (33)
  - ACTINOMYCOSIS [None]
  - ANXIETY [None]
  - BONE DISORDER [None]
  - BONE OPERATION [None]
  - BREATH ODOUR [None]
  - CATARACT OPERATION [None]
  - DEBRIDEMENT [None]
  - DENTAL OPERATION [None]
  - ERYTHEMA [None]
  - FAILURE OF IMPLANT [None]
  - FRONTAL SINUS OPERATION [None]
  - GINGIVAL INFECTION [None]
  - HAEMORRHAGE [None]
  - HYPERBARIC OXYGEN THERAPY [None]
  - INFECTION [None]
  - INFLUENZA LIKE ILLNESS [None]
  - LYMPHADENOPATHY [None]
  - MAXILLOFACIAL OPERATION [None]
  - OROANTRAL FISTULA [None]
  - OSTEITIS [None]
  - OSTEOMYELITIS [None]
  - OSTEONECROSIS [None]
  - PAIN [None]
  - PARATHYROIDECTOMY [None]
  - PRIMARY SEQUESTRUM [None]
  - PURULENCE [None]
  - PYREXIA [None]
  - RADIOTHERAPY [None]
  - RESORPTION BONE INCREASED [None]
  - SINUS CANCER METASTATIC [None]
  - SINUSITIS [None]
  - SWELLING FACE [None]
  - TUMOUR MARKER INCREASED [None]
